FAERS Safety Report 18054777 (Version 3)
Quarter: 2021Q2

REPORT INFORMATION
  Report Type: Spontaneous
  Country: US (occurrence: US)
  Receive Date: 20200722
  Receipt Date: 20210507
  Transmission Date: 20210717
  Serious: Yes (Other)
  Sender: FDA-Public Use
  Company Number: US-BIOGEN-2020BI00898928

PATIENT
  Sex: Female

DRUGS (2)
  1. KENALOG [Suspect]
     Active Substance: TRIAMCINOLONE ACETONIDE
     Indication: PRODUCT USED FOR UNKNOWN INDICATION
     Route: 065
  2. TYSABRI [Suspect]
     Active Substance: NATALIZUMAB
     Indication: MULTIPLE SCLEROSIS
     Route: 042
     Dates: start: 20110720, end: 202008

REACTIONS (1)
  - Anaphylactic shock [Recovered/Resolved]
